FAERS Safety Report 5700845-1 (Version None)
Quarter: 2008Q2

REPORT INFORMATION
  Report Type: 
  Country: None (occurrence: None)
  Receive Date: 20080410
  Receipt Date: 20080401
  Transmission Date: 20081010
  Serious: Yes (Other)
  Sender: FDA-Public Use
  Company Number: US-WYE-H03511908

PATIENT
  Sex: Male
  Weight: 56 kg

DRUGS (6)
  1. TEMSIROLIMUS [Suspect]
     Indication: MANTLE CELL LYMPHOMA
     Route: 042
     Dates: start: 20070213
  2. ACETAMINOPHEN [Concomitant]
     Indication: PROPHYLAXIS
     Dosage: UNKNOWN
     Dates: start: 20070227
  3. ZOFRAN [Concomitant]
     Indication: NAUSEA
     Dosage: UNKNOWN
     Dates: start: 20070220
  4. BENADRYL [Concomitant]
     Indication: PROPHYLAXIS
     Dosage: UNKNOWN
     Dates: start: 20070213
  5. OXYCODONE HCL [Concomitant]
     Indication: PAIN
     Dosage: UNKNOWN
     Dates: start: 20070126
  6. PROCRIT [Concomitant]
     Indication: ANAEMIA
     Dosage: UNKNOWN
     Dates: start: 20070306

REACTIONS (1)
  - SQUAMOUS CELL CARCINOMA [None]
